FAERS Safety Report 25751979 (Version 1)
Quarter: 2025Q3

REPORT INFORMATION
  Report Type: Spontaneous
  Country: US (occurrence: US)
  Receive Date: 20250902
  Receipt Date: 20250902
  Transmission Date: 20251021
  Serious: Yes (Hospitalization)
  Sender: JOHNSON AND JOHNSON
  Company Number: US-JNJFOC-20250835578

PATIENT
  Sex: Female

DRUGS (1)
  1. CARVYKTI [Suspect]
     Active Substance: CILTACABTAGENE AUTOLEUCEL
     Indication: Product used for unknown indication
     Route: 065
     Dates: start: 20250820, end: 20250820

REACTIONS (1)
  - Malaise [Unknown]
